FAERS Safety Report 8358010-8 (Version None)
Quarter: 2012Q2

REPORT INFORMATION
  Report Type: 
  Country: None (occurrence: None)
  Receive Date: 20120514
  Receipt Date: 20110810
  Transmission Date: 20120825
  Serious: No
  Sender: FDA-Public Use
  Company Number: US-ABBOTT-11P-163-0845185-00

PATIENT
  Sex: Female

DRUGS (1)
  1. GENGRAF [Suspect]
     Indication: RASH GENERALISED
     Dates: start: 20090101, end: 20110701

REACTIONS (2)
  - BLOOD UREA INCREASED [None]
  - BLOOD CREATININE INCREASED [None]
